FAERS Safety Report 9045322 (Version 1)
Quarter: 2013Q1

REPORT INFORMATION
  Report Type: Spontaneous
  Country: JP (occurrence: JP)
  Receive Date: 20130131
  Receipt Date: 20130131
  Transmission Date: 20140127
  Serious: Yes (Other)
  Sender: FDA-Public Use
  Company Number: JP-MYLANLABS-2013S1001652

PATIENT
  Age: 60 Year
  Sex: Male
  Weight: 54 kg

DRUGS (4)
  1. FLUOROURACIL [Suspect]
     Indication: COLON CANCER
     Dosage: 950MG ONCE A WEEK FOR 6 WEEKS AND 2 WEEKS OF WASHOUT PER CYCLE
     Route: 065
     Dates: start: 20070911
  2. ALEVIATIN [Interacting]
     Indication: INJURY
     Dosage: 220MG/DAY OF 10% POWDER, TWICE DAILY
     Route: 048
     Dates: start: 1996, end: 20071011
  3. PHENOBAL [Interacting]
     Indication: INJURY
     Dosage: 100MG/DAY OF 10% POWDER, TWICE DAILY
     Route: 048
     Dates: start: 1996, end: 20071011
  4. CALCIUM LEVOFOLINATE [Concomitant]
     Indication: COLON CANCER
     Dosage: 400MG ONCE A WEEK FOR 6 WEEKS AND 2 WEEKS OF WASHOUT PER CYCLE
     Route: 065
     Dates: start: 20070911

REACTIONS (10)
  - Drug interaction [Recovered/Resolved]
  - Toxicity to various agents [Unknown]
  - Nausea [Unknown]
  - Abdominal discomfort [Unknown]
  - Epigastric discomfort [Unknown]
  - Fatigue [Unknown]
  - Decreased appetite [Unknown]
  - Vomiting [Unknown]
  - Eye disorder [Unknown]
  - Anticonvulsant drug level increased [Recovered/Resolved]
